FAERS Safety Report 20952897 (Version 1)
Quarter: 2022Q2

REPORT INFORMATION
  Report Type: Spontaneous
  Country: CA (occurrence: CA)
  Receive Date: 20220613
  Receipt Date: 20220613
  Transmission Date: 20220720
  Serious: Yes (Other)
  Sender: FDA-Public Use
  Company Number: CA-TEVA-2022-CA-2044775

PATIENT
  Age: 62 Year
  Sex: Male
  Weight: 120 kg

DRUGS (12)
  1. NAPROXEN [Suspect]
     Active Substance: NAPROXEN
     Dosage: 1000 MILLIGRAM DAILY;
     Route: 048
  2. BREO ELLIPTA [Concomitant]
     Active Substance: FLUTICASONE FUROATE\VILANTEROL TRIFENATATE
     Route: 065
  3. GARLIC [Concomitant]
     Active Substance: GARLIC
     Route: 048
  4. MAGNESIUM [Concomitant]
     Active Substance: MAGNESIUM
  5. NIFEDIPINE [Concomitant]
     Active Substance: NIFEDIPINE
  6. PERINDOPRIL [Concomitant]
     Active Substance: PERINDOPRIL
  7. SPIRONOLACTONE [Concomitant]
     Active Substance: SPIRONOLACTONE
  8. ST. JOHN^S WORT [Concomitant]
     Active Substance: ST. JOHN^S WORT
  9. TRAZODONE [Concomitant]
     Active Substance: TRAZODONE HYDROCHLORIDE
  10. VITAMIN D [Concomitant]
     Active Substance: VITAMIN D NOS
  11. VITAMIN E [Concomitant]
     Active Substance: .ALPHA.-TOCOPHEROL
  12. ZINC PLUS VITAMINS C + B6 LOZENGES [Concomitant]

REACTIONS (1)
  - Kidney infection [Recovered/Resolved]
